FAERS Safety Report 7598119-X (Version None)
Quarter: 2011Q3

REPORT INFORMATION
  Report Type: 
  Country: None (occurrence: None)
  Receive Date: 20110708
  Receipt Date: 20110628
  Transmission Date: 20111222
  Serious: Yes (Other)
  Sender: FDA-Public Use
  Company Number: CA-US-EMD SERONO, INC.-230026J10CAN

PATIENT
  Sex: Female

DRUGS (9)
  1. REBIF [Suspect]
     Indication: RELAPSING-REMITTING MULTIPLE SCLEROSIS
     Route: 058
     Dates: start: 20091229
  2. REBIF [Suspect]
     Dates: start: 20100101, end: 20100126
  3. LOESTRIN 1.5/30 [Concomitant]
  4. REBIF [Suspect]
     Dates: start: 20091229, end: 20100101
  5. REBIF [Suspect]
  6. VITAMIN D [Concomitant]
  7. SYNTHROID [Concomitant]
  8. TYLENOL-500 [Concomitant]
  9. VITAMIN B-12 [Concomitant]

REACTIONS (30)
  - NAUSEA [None]
  - TERMINAL INSOMNIA [None]
  - VISION BLURRED [None]
  - HYPOAESTHESIA [None]
  - MUSCULOSKELETAL CHEST PAIN [None]
  - TREMOR [None]
  - INJECTION SITE PAIN [None]
  - VOMITING [None]
  - BRUXISM [None]
  - OESOPHAGITIS [None]
  - HEADACHE [None]
  - INJECTION SITE HAEMORRHAGE [None]
  - HYPERHIDROSIS [None]
  - PAIN IN JAW [None]
  - MUSCULAR WEAKNESS [None]
  - GINGIVAL PAIN [None]
  - ASTHENIA [None]
  - MULTIPLE SCLEROSIS RELAPSE [None]
  - INFLUENZA LIKE ILLNESS [None]
  - ADVERSE DRUG REACTION [None]
  - WEIGHT DECREASED [None]
  - MALAISE [None]
  - DIPLOPIA [None]
  - VISUAL ACUITY REDUCED [None]
  - NOCTURIA [None]
  - PARAESTHESIA [None]
  - INJECTION SITE ERYTHEMA [None]
  - GINGIVAL RECESSION [None]
  - ABDOMINAL PAIN UPPER [None]
  - BLADDER DISORDER [None]
